FAERS Safety Report 8978223 (Version 4)
Quarter: 2013Q1

REPORT INFORMATION
  Report Type: Spontaneous
  Country: US (occurrence: US)
  Receive Date: 20121221
  Receipt Date: 20130221
  Transmission Date: 20140127
  Serious: Yes (Hospitalization, Other)
  Sender: FDA-Public Use
  Company Number: US-PFIZER INC-2012321584

PATIENT
  Age: 64 Year
  Sex: Female
  Weight: 86.17 kg

DRUGS (19)
  1. REVATIO [Suspect]
     Indication: PULMONARY ARTERIAL HYPERTENSION
     Dosage: 20 MG, 3X/DAY
     Route: 048
     Dates: start: 2008
  2. REVATIO [Suspect]
     Dosage: 40 MG, 3X/DAY
     Route: 048
     Dates: start: 2008
  3. TOPROL [Concomitant]
     Dosage: UNK
  4. COZAAR [Concomitant]
     Indication: HYPERTENSION
     Dosage: UNK
  5. LASIX [Concomitant]
     Indication: FLUID RETENTION
     Dosage: 40 MG, 2X/DAY
  6. POTASSIUM [Concomitant]
     Dosage: 10 MEQ, UNK
  7. COUMADIN [Concomitant]
     Indication: PULMONARY EMBOLISM
     Dosage: 10 MG, 1X/DAY AT NIGHT
  8. COUMADIN [Concomitant]
     Indication: THROMBOSIS
  9. COUMADIN [Concomitant]
     Indication: INTERNATIONAL NORMALISED RATIO DECREASED
  10. LEVOTHYROXINE [Concomitant]
     Indication: HYPOTHYROIDISM
     Dosage: 0.112 UG, 1X/DAY
  11. GABAPENTIN [Concomitant]
     Dosage: 400 MG, UNK
  12. LIPITOR [Concomitant]
     Dosage: 20 MG, UNK
  13. SERTRALINE [Concomitant]
     Dosage: 100 MG, 1X/DAY
  14. DIAZEPAM [Concomitant]
     Dosage: 5 MG, 1X/DAY
  15. MECLIZINE [Concomitant]
     Dosage: UNK
  16. ZOFRAN [Concomitant]
     Dosage: UNK
  17. VITAMIN C [Concomitant]
     Dosage: UNK
  18. VITAMIN D [Concomitant]
     Dosage: UNK
  19. CALCIUM [Concomitant]
     Dosage: UNK

REACTIONS (16)
  - Lung neoplasm malignant [Unknown]
  - Lymphoma [Unknown]
  - Lymphoma [Unknown]
  - Thyroid cancer [Unknown]
  - Small cell lung cancer [Unknown]
  - Pulmonary infarction [Unknown]
  - Thrombosis [Unknown]
  - Haemoptysis [Unknown]
  - Cardiac failure congestive [Unknown]
  - Blood glucose abnormal [Unknown]
  - Fluid retention [Unknown]
  - Anaemia [Unknown]
  - Alopecia [Unknown]
  - Weight decreased [Unknown]
  - Vitamin D decreased [Unknown]
  - Off label use [Unknown]
